FAERS Safety Report 24361335 (Version 1)
Quarter: 2024Q3

REPORT INFORMATION
  Report Type: Spontaneous
  Country: DE (occurrence: DE)
  Receive Date: 20240925
  Receipt Date: 20240925
  Transmission Date: 20241016
  Serious: Yes (Hospitalization, Other)
  Sender: SANDOZ
  Company Number: DE-SANDOZ-SDZ2024DE081952

PATIENT
  Age: 51 Year
  Sex: Male

DRUGS (1)
  1. ITRACONAZOLE [Suspect]
     Active Substance: ITRACONAZOLE
     Indication: Product used for unknown indication
     Dosage: 1-0-1 FOR 1 WEEK EACH IN  APRIL, MAY, JUNE AND JULY 2024 (4 CYCLES)
     Route: 065

REACTIONS (4)
  - Gastrointestinal disorder [Unknown]
  - Atrial fibrillation [Unknown]
  - Abdominal distension [Unknown]
  - Food allergy [Unknown]

NARRATIVE: CASE EVENT DATE: 20240501
